FAERS Safety Report 20941740 (Version 1)
Quarter: 2022Q2

REPORT INFORMATION
  Report Type: Spontaneous
  Country: SE (occurrence: SE)
  Receive Date: 20220610
  Receipt Date: 20220610
  Transmission Date: 20220721
  Serious: Yes (Hospitalization)
  Sender: FDA-Public Use
  Company Number: None

PATIENT
  Age: 23 Year
  Sex: Male

DRUGS (2)
  1. TRAMADOL [Suspect]
     Active Substance: TRAMADOL
     Route: 065
     Dates: start: 202205
  2. ALPRAZOLAM [Suspect]
     Active Substance: ALPRAZOLAM
     Dates: start: 202205

REACTIONS (6)
  - Muscle twitching [Recovering/Resolving]
  - Loss of consciousness [Recovering/Resolving]
  - Respiratory depression [Recovering/Resolving]
  - Intentional self-injury [Recovering/Resolving]
  - Accidental overdose [Recovering/Resolving]
  - Toxicity to various agents [Recovering/Resolving]

NARRATIVE: CASE EVENT DATE: 20220501
